FAERS Safety Report 9760031 (Version 1)
Quarter: 2013Q4

REPORT INFORMATION
  Report Type: Spontaneous
  Country: US (occurrence: US)
  Receive Date: 20131216
  Receipt Date: 20131216
  Transmission Date: 20140711
  Serious: No
  Sender: FDA-Public Use
  Company Number: US-BIOGENIDEC-2013BI096398

PATIENT
  Age: 66 Year
  Sex: Male

DRUGS (1)
  1. TECFIDERA [Suspect]
     Indication: MULTIPLE SCLEROSIS
     Route: 048
     Dates: start: 201305

REACTIONS (9)
  - Asthenia [Unknown]
  - Fatigue [Unknown]
  - Parosmia [Unknown]
  - Dysgeusia [Unknown]
  - Abdominal distension [Unknown]
  - Flatulence [Unknown]
  - Rectal discharge [Unknown]
  - Frequent bowel movements [Unknown]
  - Nausea [Unknown]
